FAERS Safety Report 19465541 (Version 1)
Quarter: 2021Q2

REPORT INFORMATION
  Report Type: Other
  Country: US (occurrence: US)
  Receive Date: 20210608
  Receipt Date: 20210608
  Transmission Date: 20210717
  Serious: Yes (Death, Hospitalization, Other)
  Sender: FDA-Public Use
  Company Number: US-INVATECH-000095

PATIENT
  Age: 29 Year
  Sex: Male

DRUGS (6)
  1. PALIPERIDONE. [Concomitant]
     Active Substance: PALIPERIDONE
     Indication: SUICIDAL IDEATION
  2. VALPROIC ACID. [Suspect]
     Active Substance: VALPROIC ACID
     Indication: PRODUCT USED FOR UNKNOWN INDICATION
     Dosage: 500 MG TWO TIMES PER DAY.
  3. CARBAMAZEPINE. [Concomitant]
     Active Substance: CARBAMAZEPINE
     Indication: SUICIDAL IDEATION
  4. ESCITALOPRAM [Concomitant]
     Active Substance: ESCITALOPRAM OXALATE
     Indication: PRODUCT USED FOR UNKNOWN INDICATION
     Dosage: 10 MG ONCE A DAY .
  5. PALIPERIDONE. [Concomitant]
     Active Substance: PALIPERIDONE
     Indication: DELUSION
  6. CARBAMAZEPINE. [Concomitant]
     Active Substance: CARBAMAZEPINE
     Indication: DELUSION

REACTIONS (7)
  - Brain oedema [Fatal]
  - Generalised tonic-clonic seizure [Unknown]
  - Toxicity to various agents [Fatal]
  - Hyperammonaemic encephalopathy [Fatal]
  - Affective disorder [Unknown]
  - Condition aggravated [Unknown]
  - Psychotic disorder [Unknown]
